FAERS Safety Report 13377576 (Version 1)
Quarter: 2017Q1

REPORT INFORMATION
  Report Type: Report from Study
  Country: US (occurrence: US)
  Receive Date: 20170328
  Receipt Date: 20170328
  Transmission Date: 20170429
  Serious: Yes (Other)
  Sender: FDA-Public Use
  Company Number: US-PFIZER INC-2017001192

PATIENT
  Age: 48 Year
  Sex: Male

DRUGS (4)
  1. PREDNISONE. [Suspect]
     Active Substance: PREDNISONE
     Dosage: 60 MG, DAILY
  2. SOLU-MEDROL [Suspect]
     Active Substance: METHYLPREDNISOLONE SODIUM SUCCINATE
     Indication: NEUROSARCOIDOSIS
     Dosage: 1 G, DAILY
  3. PREDNISONE. [Suspect]
     Active Substance: PREDNISONE
     Indication: NEUROSARCOIDOSIS
     Dosage: 80 MG, DAILY
  4. AZATHIOPRINE. [Concomitant]
     Active Substance: AZATHIOPRINE
     Dosage: 100 MG, DAILY

REACTIONS (1)
  - Diabetes mellitus [Recovered/Resolved]
